FAERS Safety Report 10073393 (Version 1)
Quarter: 2014Q2

REPORT INFORMATION
  Report Type: Spontaneous
  Country: DE (occurrence: DE)
  Receive Date: 20140411
  Receipt Date: 20140411
  Transmission Date: 20141212
  Serious: Yes (Life-Threatening, Hospitalization)
  Sender: FDA-Public Use
  Company Number: DE-TEVA-473633GER

PATIENT
  Age: 17 Year
  Sex: Female

DRUGS (2)
  1. DICLOFENAC-RATIOPHARM [Suspect]
     Indication: SUICIDE ATTEMPT
     Route: 048
     Dates: start: 20140321, end: 20140321
  2. IBU-RATIOPHARM 400 MG FILMTABLETTEN [Suspect]
     Indication: SUICIDE ATTEMPT
     Route: 048
     Dates: start: 20140321, end: 20140321

REACTIONS (8)
  - Suicide attempt [Unknown]
  - Respiratory failure [Recovering/Resolving]
  - Hepatic failure [Recovering/Resolving]
  - Hypothalamo-pituitary disorder [Recovering/Resolving]
  - Tremor [Not Recovered/Not Resolved]
  - Speech disorder [Recovering/Resolving]
  - Neurological symptom [Recovering/Resolving]
  - Gastrointestinal disorder [Recovering/Resolving]
